FAERS Safety Report 16188581 (Version 1)
Quarter: 2019Q2

REPORT INFORMATION
  Report Type: Spontaneous
  Country: GB (occurrence: GB)
  Receive Date: 20190412
  Receipt Date: 20190412
  Transmission Date: 20190711
  Serious: Yes (Other)
  Sender: FDA-Public Use
  Company Number: GB-TEVA-2019-GB-1034696

PATIENT
  Age: 68 Year
  Sex: Male
  Weight: 74 kg

DRUGS (4)
  1. VENTOLIN [Concomitant]
     Active Substance: ALBUTEROL SULFATE
     Route: 055
     Dates: start: 20120531
  2. SYMBICORT [Concomitant]
     Active Substance: BUDESONIDE\FORMOTEROL FUMARATE DIHYDRATE
     Dosage: USE AS DIRECTED
     Dates: start: 20170323
  3. FLUCONAZOLE. [Suspect]
     Active Substance: FLUCONAZOLE
     Route: 048
  4. MOMETASONE [Concomitant]
     Active Substance: MOMETASONE
     Dosage: INTO THE AFFECTED NOSTRIL(S)
     Dates: start: 20121016

REACTIONS (3)
  - Abnormal loss of weight [Recovering/Resolving]
  - Fatigue [Recovering/Resolving]
  - Lethargy [Recovering/Resolving]
